FAERS Safety Report 9107232 (Version 1)
Quarter: 2013Q1

REPORT INFORMATION
  Report Type: Report from Study
  Country: US (occurrence: US)
  Receive Date: 20130221
  Receipt Date: 20130221
  Transmission Date: 20140127
  Serious: No
  Sender: FDA-Public Use
  Company Number: US-VERTEX PHARMACEUTICALS INC.-2013-002393

PATIENT
  Age: 59 Year
  Sex: Male
  Weight: 75 kg

DRUGS (7)
  1. VX-950 (TELAPREVIR) [Suspect]
     Indication: HEPATITIS C
     Dosage: 750 MG, TID
     Route: 048
  2. RIBAVIRIN [Suspect]
     Indication: HEPATITIS C
     Dosage: 200 MG, UNK
  3. PEGASYS [Suspect]
     Indication: HEPATITIS C
     Dosage: 180MCG/M
  4. MAXITROL [Concomitant]
     Dosage: 0.1 %, UNK
     Route: 047
  5. B COMPLEX [Concomitant]
  6. FISH OIL [Concomitant]
     Dosage: 1200 MG, UNK
  7. IBUPROFEN [Concomitant]
     Dosage: 200 MG, UNK

REACTIONS (5)
  - Vision blurred [Unknown]
  - Skin sensitisation [Unknown]
  - Dry skin [Unknown]
  - Rash generalised [Unknown]
  - Dysgeusia [Unknown]
